FAERS Safety Report 9456388 (Version 2)
Quarter: 2013Q3

REPORT INFORMATION
  Report Type: Spontaneous
  Country: US (occurrence: US)
  Receive Date: 20130813
  Receipt Date: 20130903
  Transmission Date: 20140515
  Serious: No
  Sender: FDA-Public Use
  Company Number: US-VERTEX PHARMACEUTICALS INC-2013-008750

PATIENT
  Age: 52 Year
  Sex: Male
  Weight: 122 kg

DRUGS (4)
  1. INCIVEK [Suspect]
     Indication: HEPATITIS C
     Dosage: 750 MG, TID
     Route: 048
     Dates: start: 20130703
  2. LISINOPRIL [Concomitant]
  3. ASA [Concomitant]
  4. VITAMINS [Concomitant]

REACTIONS (1)
  - Fatigue [Not Recovered/Not Resolved]
